FAERS Safety Report 6370914-4 (Version None)
Quarter: 2009Q3

REPORT INFORMATION
  Report Type: 
  Country: None (occurrence: None)
  Receive Date: 20090923
  Receipt Date: 20070518
  Transmission Date: 20100115
  Serious: Yes (Other)
  Sender: FDA-Public Use
  Company Number: US-ASTRAZENECA-2006UW22360

PATIENT
  Age: 14170 Day
  Sex: Female
  Weight: 92.1 kg

DRUGS (19)
  1. SEROQUEL [Suspect]
     Indication: BIPOLAR DISORDER
     Route: 048
     Dates: start: 20031201
  2. SEROQUEL [Suspect]
     Indication: SLEEP DISORDER
     Route: 048
     Dates: start: 20031201
  3. SEROQUEL [Suspect]
     Indication: DEPRESSION
     Route: 048
     Dates: start: 20031201
  4. SEROQUEL [Suspect]
     Dosage: 200-400 MG
     Route: 048
     Dates: start: 20040810
  5. SEROQUEL [Suspect]
     Dosage: 200-400 MG
     Route: 048
     Dates: start: 20040810
  6. SEROQUEL [Suspect]
     Dosage: 200-400 MG
     Route: 048
     Dates: start: 20040810
  7. HALDOL [Suspect]
  8. RISPERDAL [Suspect]
  9. HYDROCHLOROTHIAZIDE [Concomitant]
     Route: 048
     Dates: start: 20031229
  10. ACIPHEX [Concomitant]
     Route: 048
     Dates: start: 20060222
  11. LIPITOR [Concomitant]
     Route: 048
     Dates: start: 20060222
  12. ACTOS [Concomitant]
     Route: 048
     Dates: start: 20060222
  13. BENICAR HCT [Concomitant]
     Dosage: 20/12.5 MG EVERYDAY
     Route: 048
     Dates: start: 20070301
  14. GUAIFENESIN [Concomitant]
     Route: 048
     Dates: start: 20061031
  15. FLEXERIL [Concomitant]
     Route: 048
     Dates: start: 20060314
  16. ADVAIR DISKUS 100/50 [Concomitant]
     Dosage: 250/50-500/50
     Route: 048
     Dates: start: 20060221
  17. GEODON [Concomitant]
     Route: 048
     Dates: start: 20060422
  18. AVANDIA [Concomitant]
     Route: 048
     Dates: start: 20061103
  19. ZOLOFT [Concomitant]
     Route: 048
     Dates: start: 20060214

REACTIONS (5)
  - DIABETES MELLITUS [None]
  - DIABETIC KETOACIDOSIS [None]
  - GLUCOSE TOLERANCE IMPAIRED [None]
  - TYPE 1 DIABETES MELLITUS [None]
  - TYPE 2 DIABETES MELLITUS [None]
